FAERS Safety Report 4495672-X (Version None)
Quarter: 2004Q4

REPORT INFORMATION
  Report Type: 
  Country: None (occurrence: None)
  Receive Date: 20041108
  Receipt Date: 20041026
  Transmission Date: 20050328
  Serious: Yes (Other)
  Sender: FDA-Public Use
  Company Number: NO-MERCK-0411USA00488

PATIENT
  Age: 53 Year
  Sex: Female

DRUGS (6)
  1. ELSPAR [Suspect]
     Route: 065
  2. METHOTREXATE [Concomitant]
     Route: 065
  3. VINCRISTINE SULFATE [Concomitant]
     Route: 065
  4. DAUNORUBICIN [Concomitant]
     Route: 065
  5. CYCLOPHOSPHAMIDE [Concomitant]
     Route: 065
  6. CORTICOSTEROIDS (UNSPECIFIED) [Concomitant]
     Route: 065

REACTIONS (1)
  - PANCYTOPENIA [None]
